FAERS Safety Report 5371138-X (Version None)
Quarter: 2007Q2

REPORT INFORMATION
  Report Type: 
  Country: None (occurrence: None)
  Receive Date: 20070626
  Receipt Date: 20070618
  Transmission Date: 20071010
  Serious: Yes (Other)
  Sender: FDA-Public Use
  Company Number: JP-MERCK-0706USA04202

PATIENT
  Age: 65 Year
  Sex: Female

DRUGS (6)
  1. ZETIA [Suspect]
     Indication: HYPERCHOLESTEROLAEMIA
     Route: 048
     Dates: start: 20070613, end: 20070615
  2. NORVASC [Concomitant]
     Route: 065
  3. MICARDIS [Concomitant]
     Route: 065
     Dates: end: 20070614
  4. JUVELA N [Concomitant]
     Route: 065
  5. JUVELA N [Concomitant]
     Route: 065
  6. LIVALO [Concomitant]
     Route: 065

REACTIONS (6)
  - BLOOD LACTATE DEHYDROGENASE INCREASED [None]
  - DIZZINESS [None]
  - FATIGUE [None]
  - MUSCULAR WEAKNESS [None]
  - PLATELET COUNT DECREASED [None]
  - URTICARIA GENERALISED [None]
